FAERS Safety Report 9552464 (Version 1)
Quarter: 2013Q3

REPORT INFORMATION
  Report Type: Spontaneous
  Country: US (occurrence: None)
  Receive Date: 20130923
  Receipt Date: 20130923
  Transmission Date: 20140520
  Serious: Yes (Other)
  Sender: FDA-Public Use
  Company Number: 2013AP008084

PATIENT
  Sex: Female

DRUGS (1)
  1. ALENDRONATE SODIUM [Suspect]
     Indication: OSTEOPOROSIS

REACTIONS (9)
  - Multiple injuries [None]
  - Osteonecrosis of jaw [None]
  - Low turnover osteopathy [None]
  - Femur fracture [None]
  - Anxiety [None]
  - Anxiety [None]
  - Emotional distress [None]
  - Anhedonia [None]
  - Fear of disease [None]
